FAERS Safety Report 16918468 (Version 2)
Quarter: 2019Q4

REPORT INFORMATION
  Report Type: Spontaneous
  Country: US (occurrence: US)
  Receive Date: 20191015
  Receipt Date: 20191015
  Transmission Date: 20200122
  Serious: Yes (Hospitalization)
  Sender: FDA-Public Use
  Company Number: US-SEBELA IRELAND LIMITED-2019SEB00222

PATIENT
  Age: 73 Year
  Sex: Female

DRUGS (2)
  1. AZATHIOPRINE. [Suspect]
     Active Substance: AZATHIOPRINE
     Dosage: 50 MG, 2X/DAY
  2. UNSPECIFIED MEDICATIONS FOR MYASTHENIA OF THE EYES [Suspect]
     Active Substance: UNSPECIFIED INGREDIENT
     Indication: OCULAR MYASTHENIA
     Dosage: UNK

REACTIONS (2)
  - White blood cell disorder [Unknown]
  - Viral infection [Unknown]
